FAERS Safety Report 9182531 (Version 1)
Quarter: 2013Q1

REPORT INFORMATION
  Report Type: Spontaneous
  Country: US (occurrence: US)
  Receive Date: 20130322
  Receipt Date: 20130322
  Transmission Date: 20140127
  Serious: Yes (Other)
  Sender: FDA-Public Use
  Company Number: US-BAYER-2013-030669

PATIENT
  Sex: Female

DRUGS (2)
  1. MIRENA [Suspect]
     Indication: MENORRHAGIA
     Dosage: 20 ?G/D, CONT
     Route: 015
     Dates: start: 20120919
  2. MIRENA [Suspect]
     Indication: MIGRAINE

REACTIONS (10)
  - Genital haemorrhage [None]
  - Menstrual disorder [None]
  - Drug ineffective for unapproved indication [None]
  - Drug ineffective for unapproved indication [None]
  - Acne [None]
  - Erythema [None]
  - Anxiety [None]
  - Premenstrual syndrome [None]
  - Mood swings [None]
  - Off label use [None]
